FAERS Safety Report 4928304-4 (Version None)
Quarter: 2006Q1

REPORT INFORMATION
  Report Type: 
  Country: None (occurrence: None)
  Receive Date: 20060228
  Receipt Date: 20051118
  Transmission Date: 20060701
  Serious: Yes (Hospitalization, Disabling, Other)
  Sender: FDA-Public Use
  Company Number: US-MERCK-0511USA03503

PATIENT
  Age: 60 Year
  Sex: Female
  Weight: 73 kg

DRUGS (4)
  1. VIOXX [Suspect]
     Indication: ARTHRITIS
     Route: 048
  2. VIOXX [Suspect]
     Route: 048
  3. CALCIUM (UNSPECIFIED) [Concomitant]
     Route: 065
  4. POTASSIUM (UNSPECIFIED) [Concomitant]
     Route: 065

REACTIONS (25)
  - ABDOMINAL PAIN [None]
  - ANXIETY [None]
  - BODY TEMPERATURE INCREASED [None]
  - CHEST DISCOMFORT [None]
  - CHEST PAIN [None]
  - CONVULSION [None]
  - CORONARY ARTERY DISEASE [None]
  - DEPRESSION [None]
  - DIVERTICULITIS [None]
  - ELECTROCARDIOGRAM ST SEGMENT DEPRESSION [None]
  - FIBROMYALGIA [None]
  - HAEMATOMA [None]
  - HAEMOGLOBIN ABNORMAL [None]
  - HYPERLIPIDAEMIA [None]
  - HYPOKALAEMIA [None]
  - LEUKOCYTOSIS [None]
  - MAJOR DEPRESSION [None]
  - MEDICAL DEVICE COMPLICATION [None]
  - PALPITATIONS [None]
  - POSTOPERATIVE WOUND INFECTION [None]
  - PYREXIA [None]
  - RESTLESS LEGS SYNDROME [None]
  - STAPHYLOCOCCAL INFECTION [None]
  - SUICIDAL IDEATION [None]
  - VASCULAR PSEUDOANEURYSM [None]
